FAERS Safety Report 9135396 (Version 1)
Quarter: 2013Q1

REPORT INFORMATION
  Report Type: Spontaneous
  Country: GB (occurrence: None)
  Receive Date: 20130207
  Receipt Date: 20130207
  Transmission Date: 20140127
  Serious: Yes (Death)
  Sender: FDA-Public Use
  Company Number: APL-2013-00013

PATIENT
  Age: 32 Year
  Sex: Male

DRUGS (4)
  1. PECFENT [Suspect]
     Indication: PAIN
     Dosage: SINGLE
     Dates: start: 20130125, end: 20130125
  2. DIAMORPHINE (DIAMORPHINE HYDROCHLORIDE) [Concomitant]
  3. MIDAZOLAM (MIDAZOLAM HYDROCHLORIDE) [Concomitant]
  4. HYOSCINE HYDROBROMIDE [Concomitant]

REACTIONS (4)
  - Alcoholic liver disease [None]
  - Hepatic failure [None]
  - Disease progression [None]
  - Off label use [None]
